FAERS Safety Report 18975370 (Version 3)
Quarter: 2021Q2

REPORT INFORMATION
  Report Type: Spontaneous
  Country: JP (occurrence: JP)
  Receive Date: 20210305
  Receipt Date: 20210531
  Transmission Date: 20210717
  Serious: Yes (Hospitalization)
  Sender: FDA-Public Use
  Company Number: JP-UCBSA-2021010545

PATIENT
  Age: 45 Year
  Sex: Male

DRUGS (8)
  1. MIDAZOLAM. [Concomitant]
     Active Substance: MIDAZOLAM
     Dosage: REDUCED DOSE
  2. E KEPPRA [Suspect]
     Active Substance: LEVETIRACETAM
     Dosage: 2000 MG DAILY
     Route: 048
  3. MIDAZOLAM. [Concomitant]
     Active Substance: MIDAZOLAM
     Dosage: INCREASED DOSE
  4. VIMPAT [Suspect]
     Active Substance: LACOSAMIDE
     Dosage: 200 MG DAILY
     Route: 048
  5. SODIUM VALPROATE [Concomitant]
     Active Substance: VALPROATE SODIUM
     Indication: EPILEPSY
     Dosage: 1200 MG
  6. E KEPPRA [Suspect]
     Active Substance: LEVETIRACETAM
     Indication: EPILEPSY
     Dosage: 1500 MG DAILY
     Route: 048
  7. MIDAZOLAM. [Concomitant]
     Active Substance: MIDAZOLAM
     Indication: EPILEPSY
     Dosage: UNK
  8. VIMPAT [Suspect]
     Active Substance: LACOSAMIDE
     Indication: EPILEPSY
     Dosage: 100 MG DAILY
     Route: 048

REACTIONS (4)
  - Gait disturbance [Unknown]
  - Glycosylated haemoglobin increased [Unknown]
  - Weight increased [Unknown]
  - Hepatic function abnormal [Recovering/Resolving]
